FAERS Safety Report 17948696 (Version 1)
Quarter: 2020Q2

REPORT INFORMATION
  Report Type: Report from Study
  Country: NL (occurrence: NL)
  Receive Date: 20200626
  Receipt Date: 20200626
  Transmission Date: 20200714
  Serious: Yes (Other)
  Sender: FDA-Public Use
  Company Number: NL-ACCORD-186298

PATIENT
  Age: 63 Year
  Sex: Male

DRUGS (4)
  1. OMEPRAZOLE. [Concomitant]
     Active Substance: OMEPRAZOLE
     Dosage: 20MG, ZN,  AS REQUIRED
  2. ETORICOXIB. [Concomitant]
     Active Substance: ETORICOXIB
     Dosage: 90MG, ZN  AS REQUIRED
  3. METHOTREXATE. [Suspect]
     Active Substance: METHOTREXATE
     Indication: SPONDYLITIS
     Dosage: 15MG, 1X/W
     Dates: start: 20190321, end: 20200527
  4. FOLIC ACID. [Concomitant]
     Active Substance: FOLIC ACID
     Dosage: 10MG, 1X/W
     Dates: start: 20160114, end: 20200527

REACTIONS (3)
  - Photosensitivity reaction [Unknown]
  - Post procedural haemorrhage [Unknown]
  - Cystitis [Unknown]

NARRATIVE: CASE EVENT DATE: 20200114
